FAERS Safety Report 10918925 (Version 2)
Quarter: 2015Q2

REPORT INFORMATION
  Report Type: Spontaneous
  Country: US (occurrence: US)
  Receive Date: 20150316
  Receipt Date: 20150611
  Transmission Date: 20150821
  Serious: No
  Sender: FDA-Public Use
  Company Number: US-ASTELLAS-2015US003002

PATIENT
  Sex: Male

DRUGS (1)
  1. XTANDI [Suspect]
     Active Substance: ENZALUTAMIDE
     Indication: PROSTATE CANCER
     Dosage: 160 MG (4 CAPSULES), ONCE DAILY
     Route: 048

REACTIONS (7)
  - Diarrhoea [Unknown]
  - Blood glucose abnormal [Unknown]
  - Fatigue [Unknown]
  - Hyperphagia [Unknown]
  - Asthenia [Unknown]
  - Hypersomnia [Unknown]
  - Weight increased [Unknown]
